FAERS Safety Report 12349096 (Version 1)
Quarter: 2016Q2

REPORT INFORMATION
  Report Type: Spontaneous
  Country: US (occurrence: US)
  Receive Date: 20160509
  Receipt Date: 20160509
  Transmission Date: 20160815
  Serious: Yes (Other)
  Sender: FDA-Public Use
  Company Number: US-MDT-ADR-2015-02291

PATIENT
  Age: 56 Year
  Sex: Male

DRUGS (2)
  1. DILAUDID [Suspect]
     Active Substance: HYDROMORPHONE HYDROCHLORIDE
     Dosage: 5 MG/DAY
     Route: 037
  2. BACLOFEN. [Suspect]
     Active Substance: BACLOFEN
     Dosage: 83 MCG/DAY
     Route: 037

REACTIONS (5)
  - Device damage [None]
  - Muscle spasms [Unknown]
  - Hyperhidrosis [Unknown]
  - Device failure [None]
  - Tachycardia [Unknown]
